FAERS Safety Report 12652327 (Version 1)
Quarter: 2016Q3

REPORT INFORMATION
  Report Type: Report from Study
  Country: FR (occurrence: FR)
  Receive Date: 20160815
  Receipt Date: 20160815
  Transmission Date: 20161109
  Serious: Yes (Hospitalization)
  Sender: FDA-Public Use
  Company Number: FR-UCBSA-2016008940

PATIENT
  Age: 38 Year
  Sex: Male

DRUGS (5)
  1. ORENCIA [Suspect]
     Active Substance: ABATACEPT
     Dosage: DOSE: 750 MG
     Dates: start: 20140328, end: 201405
  2. ARAVA [Concomitant]
     Active Substance: LEFLUNOMIDE
     Indication: PRODUCT USED FOR UNKNOWN INDICATION
     Dosage: UNK
     Dates: end: 20150626
  3. OFLOCET [Concomitant]
     Active Substance: OFLOXACIN
     Indication: PRODUCT USED FOR UNKNOWN INDICATION
     Dosage: UNK
  4. CERTOLIZUMAB PEGOL RA [Suspect]
     Active Substance: CERTOLIZUMAB PEGOL
     Indication: RHEUMATOID ARTHRITIS
     Dosage: 200 MG, EV 15 DAYS
     Route: 058
     Dates: start: 20130726, end: 20131115
  5. ORENCIA [Suspect]
     Active Substance: ABATACEPT
     Indication: RHEUMATOID ARTHRITIS
     Dosage: DOSE: 750 MG
     Route: 042
     Dates: start: 20131205, end: 2014

REACTIONS (7)
  - Testicular cyst [Unknown]
  - Scrotal pain [Unknown]
  - Testicular pain [Unknown]
  - Skin lesion [Unknown]
  - Frostbite [Unknown]
  - Leukocyturia [Unknown]
  - Nodule [Recovering/Resolving]

NARRATIVE: CASE EVENT DATE: 201401
